FAERS Safety Report 14390090 (Version 3)
Quarter: 2018Q3

REPORT INFORMATION
  Report Type: Report from Study
  Country: None (occurrence: US)
  Receive Date: 20180115
  Receipt Date: 20180713
  Transmission Date: 20181010
  Serious: Yes (Other)
  Sender: FDA-Public Use
  Company Number: US-ABBVIE-17K-163-2155588-00

PATIENT
  Age: 30 Year
  Sex: Male

DRUGS (3)
  1. HUMIRA [Suspect]
     Active Substance: ADALIMUMAB
     Route: 058
     Dates: start: 20171226, end: 2018
  2. HUMIRA [Suspect]
     Active Substance: ADALIMUMAB
     Indication: ANKYLOSING SPONDYLITIS
     Route: 058
     Dates: start: 20171010, end: 201711
  3. HUMIRA [Suspect]
     Active Substance: ADALIMUMAB
     Route: 058
     Dates: start: 201806

REACTIONS (18)
  - Cyst [Unknown]
  - Shoulder operation [Unknown]
  - Dysstasia [Recovering/Resolving]
  - Loss of personal independence in daily activities [Recovering/Resolving]
  - Joint swelling [Not Recovered/Not Resolved]
  - Mobility decreased [Recovering/Resolving]
  - Night sweats [Unknown]
  - Musculoskeletal stiffness [Not Recovered/Not Resolved]
  - Fatigue [Not Recovered/Not Resolved]
  - Tenderness [Not Recovered/Not Resolved]
  - Chills [Not Recovered/Not Resolved]
  - Chest pain [Unknown]
  - Joint range of motion decreased [Recovering/Resolving]
  - General physical health deterioration [Unknown]
  - Pain of skin [Unknown]
  - Arthralgia [Not Recovered/Not Resolved]
  - Nasopharyngitis [Recovered/Resolved]
  - Ankylosing spondylitis [Unknown]

NARRATIVE: CASE EVENT DATE: 2017
